FAERS Safety Report 7336384 (Version 8)
Quarter: 2019Q1

REPORT INFORMATION
  Report Type: Report from Study
  Country: BR (occurrence: BR)
  Receive Date: 20100330
  Receipt Date: 20190122
  Transmission Date: 20190418
  Serious: Yes (Other)
  Sender: FDA-Public Use
  Company Number: BR-ROCHE-693125

PATIENT
  Age: 53 Year
  Sex: Female
  Weight: 66 kg

DRUGS (15)
  1. ACTEMRA [Suspect]
     Active Substance: TOCILIZUMAB
     Route: 042
     Dates: start: 20100412, end: 20100412
  2. ACTEMRA [Suspect]
     Active Substance: TOCILIZUMAB
     Route: 042
     Dates: start: 20130806, end: 20130816
  3. MABTHERA [Suspect]
     Active Substance: RITUXIMAB
     Indication: RHEUMATOID ARTHRITIS
     Dosage: 16/JUN/2018
     Route: 042
     Dates: start: 20140415
  4. MABTHERA [Suspect]
     Active Substance: RITUXIMAB
     Route: 042
  5. ACTEMRA [Suspect]
     Active Substance: TOCILIZUMAB
     Route: 042
     Dates: start: 20100312, end: 20100312
  6. METHOTREXATE. [Concomitant]
     Active Substance: METHOTREXATE
     Route: 065
  7. TIROXIL [Concomitant]
     Indication: THYROID DISORDER
     Route: 065
  8. ACTEMRA [Suspect]
     Active Substance: TOCILIZUMAB
     Route: 042
     Dates: start: 20100712, end: 20100712
  9. EUTHYROX [Concomitant]
     Active Substance: LEVOTHYROXINE SODIUM
     Indication: THYROID DISORDER
     Dosage: RECEIVED FOR A LONG TIME
     Route: 065
  10. OXYBUTYNIN. [Concomitant]
     Active Substance: OXYBUTYNIN CHLORIDE
  11. FOLIC ACID. [Concomitant]
     Active Substance: FOLIC ACID
  12. ACTEMRA [Suspect]
     Active Substance: TOCILIZUMAB
     Indication: RHEUMATOID ARTHRITIS
     Dosage: FORM: INFUSION.
     Route: 042
     Dates: start: 20100118, end: 20100118
  13. ACTEMRA [Suspect]
     Active Substance: TOCILIZUMAB
     Route: 042
     Dates: start: 20100212, end: 20100212
  14. RETEMIC [Concomitant]
     Active Substance: OXYBUTYNIN CHLORIDE
     Route: 065
  15. ACTEMRA [Suspect]
     Active Substance: TOCILIZUMAB
     Route: 042
     Dates: start: 20100812, end: 20100812

REACTIONS (14)
  - Headache [Unknown]
  - Pain in extremity [Not Recovered/Not Resolved]
  - Arthralgia [Not Recovered/Not Resolved]
  - Nausea [Unknown]
  - Incontinence [Not Recovered/Not Resolved]
  - Hallucination [Recovered/Resolved]
  - Food allergy [Not Recovered/Not Resolved]
  - Fatigue [Recovered/Resolved]
  - Pain [Not Recovered/Not Resolved]
  - Blood pressure increased [Unknown]
  - Pain [Recovered/Resolved]
  - Erythema [Unknown]
  - Blood test abnormal [Unknown]
  - Urinary tract inflammation [Unknown]

NARRATIVE: CASE EVENT DATE: 20100118
